FAERS Safety Report 4819005-1 (Version None)
Quarter: 2005Q4

REPORT INFORMATION
  Report Type: 
  Country: None (occurrence: None)
  Receive Date: 20051101
  Receipt Date: 20051019
  Transmission Date: 20060501
  Serious: Yes (Life-Threatening, Hospitalization)
  Sender: FDA-Public Use
  Company Number: 218651

PATIENT
  Age: 60 Year
  Sex: Female

DRUGS (1)
  1. RAPTIVA [Suspect]
     Indication: PSORIASIS
     Dosage: 1 MG/KG
     Dates: start: 20021028, end: 20050921

REACTIONS (6)
  - BLOOD ALBUMIN DECREASED [None]
  - DEHYDRATION [None]
  - DIARRHOEA [None]
  - PAIN [None]
  - PNEUMONIA BLASTOMYCES [None]
  - SEPSIS [None]
